FAERS Safety Report 7123635-4 (Version None)
Quarter: 2010Q4

REPORT INFORMATION
  Report Type: 
  Country: None (occurrence: None)
  Receive Date: 20101125
  Receipt Date: 20101123
  Transmission Date: 20110411
  Serious: Yes (Other)
  Sender: FDA-Public Use
  Company Number: FR-SANOFI-AVENTIS-2010SA071148

PATIENT
  Age: 83 Year
  Sex: Male

DRUGS (13)
  1. MULTAQ [Suspect]
     Indication: ATRIAL FIBRILLATION
     Route: 048
     Dates: start: 20101122, end: 20101123
  2. MINISINTROM [Suspect]
     Dosage: 1 MG EVEN DATE AND 2 MG UNEVEN DATE
     Route: 048
     Dates: end: 20101123
  3. DIGOXINE [Concomitant]
     Route: 048
     Dates: end: 20101123
  4. SOTALOL [Concomitant]
     Route: 048
     Dates: end: 20100423
  5. AMLODIPINE [Concomitant]
     Route: 048
  6. LISINOPRIL [Concomitant]
     Route: 048
  7. GLIMEPIRIDE [Concomitant]
     Route: 048
  8. ASPIRIN [Concomitant]
     Route: 048
  9. OMEPRAZOLE [Concomitant]
     Route: 048
  10. TAMSULOSIN HYDROCHLORIDE [Concomitant]
     Route: 048
  11. TEMESTA [Concomitant]
     Route: 048
  12. MULTI-VITAMINS [Concomitant]
  13. CLONIDINE HCL [Concomitant]
     Route: 048

REACTIONS (4)
  - HAEMATOMA [None]
  - INTERNATIONAL NORMALISED RATIO INCREASED [None]
  - SKIN DISCOLOURATION [None]
  - SWOLLEN TONGUE [None]
